FAERS Safety Report 10948155 (Version 1)
Quarter: 2015Q1

REPORT INFORMATION
  Report Type: Spontaneous
  Country: US (occurrence: None)
  Receive Date: 20150225
  Receipt Date: 20150225
  Transmission Date: 20150721
  Serious: Yes (Other)
  Sender: FDA-Public Use
  Company Number: 2014-US002920

PATIENT
  Age: 54 Year
  Sex: Female

DRUGS (1)
  1. PRIALT [Suspect]
     Active Substance: ZICONOTIDE ACETATE
     Indication: PAIN
     Dosage: UNK, UG, QH, INTRATHECAL
     Route: 037
     Dates: start: 201210

REACTIONS (4)
  - Hallucination, auditory [None]
  - Dyskinesia [None]
  - Dizziness [None]
  - Delusion [None]

NARRATIVE: CASE EVENT DATE: 201311
